FAERS Safety Report 8152875-0 (Version None)
Quarter: 2012Q1

REPORT INFORMATION
  Report Type: 
  Country: None (occurrence: None)
  Receive Date: 20120221
  Receipt Date: 20120216
  Transmission Date: 20120608
  Serious: No
  Sender: FDA-Public Use
  Company Number: US-TEVA-323130USA

PATIENT
  Sex: Female

DRUGS (1)
  1. COPAXONE [Suspect]
     Indication: MULTIPLE SCLEROSIS
     Dosage: 20 MILLIGRAM;
     Route: 058
     Dates: start: 20100901

REACTIONS (7)
  - FEELING HOT [None]
  - CHEST DISCOMFORT [None]
  - IMMEDIATE POST-INJECTION REACTION [None]
  - NAUSEA [None]
  - DYSPNOEA [None]
  - ERYTHEMA [None]
  - CHILLS [None]
